FAERS Safety Report 8998377 (Version 1)
Quarter: 2013Q1

REPORT INFORMATION
  Report Type: Report from Study
  Country: AR (occurrence: AR)
  Receive Date: 20130102
  Receipt Date: 20130102
  Transmission Date: 20140127
  Serious: Yes (Hospitalization)
  Sender: FDA-Public Use
  Company Number: AR-BRISTOL-MYERS SQUIBB COMPANY-15228539

PATIENT
  Age: 76 Year
  Sex: Male

DRUGS (5)
  1. DASATINIB [Suspect]
     Indication: PROSTATE CANCER
     Dosage: 1 DF = 2 PILLS, 1DF=100, UNITS NOT SPECIFIED?INTERRUPTED ON 01AUG10?AGAIN INTERRUPTED ON 31JUL10
     Route: 048
     Dates: start: 20100723
  2. DOCETAXEL [Suspect]
     Indication: PROSTATE CANCER
     Dosage: INTERRUPTED ON 23JUL10
     Route: 042
     Dates: start: 20100723
  3. PREDNISONE [Suspect]
     Indication: PROSTATE CANCER
     Dosage: INTERRUPTED ON 23JUL10
     Route: 048
     Dates: start: 20100723
  4. TRAMADOL [Concomitant]
     Dosage: DROP
     Dates: start: 20100801
  5. OMEPRAZOLE [Concomitant]
     Dates: start: 20100801

REACTIONS (2)
  - Dehydration [Recovered/Resolved]
  - Pneumonia [Recovered/Resolved]
